FAERS Safety Report 4462225-9 (Version None)
Quarter: 2004Q3

REPORT INFORMATION
  Report Type: 
  Country: None (occurrence: None)
  Receive Date: 20040929
  Receipt Date: 20040920
  Transmission Date: 20050211
  Serious: Yes (Other)
  Sender: FDA-Public Use
  Company Number: PHEH2004US10248

PATIENT
  Age: 62 Year
  Sex: Male

DRUGS (17)
  1. GLEEVEC [Suspect]
     Indication: CHRONIC MYELOID LEUKAEMIA
     Route: 048
     Dates: start: 20010510, end: 20020401
  2. SIMETHICONE [Concomitant]
  3. CALCIUM [Concomitant]
  4. ASTELIN [Concomitant]
  5. ARTIFICIAL TEARS LUBRICANT [Concomitant]
  6. DESOWEN LOTION [Concomitant]
  7. NEURONTIN [Concomitant]
     Indication: NEUROPATHY
  8. TRILEPTAL [Concomitant]
     Indication: NEUROPATHY
  9. AMBIEN [Concomitant]
     Indication: SLEEP DISORDER
  10. DETROL LA [Concomitant]
  11. PAXIL [Concomitant]
  12. ALLEGRA-D [Concomitant]
  13. ALLERGY SHOTS [Concomitant]
     Indication: RHINITIS ALLERGIC
     Dosage: 3-4 WEEKS
  14. MULTI-VIT [Concomitant]
  15. TUSSIN SYRUP [Concomitant]
     Dosage: UNK, PRN
  16. SALINE NASAL SPRAY [Concomitant]
  17. HYOSCYAMINE [Concomitant]

REACTIONS (7)
  - APHASIA [None]
  - BRACHYTHERAPY [None]
  - ELECTRON RADIATION THERAPY TO PROSTATE [None]
  - HERPES ZOSTER [None]
  - PROSTATE CANCER [None]
  - RASH [None]
  - VERTIGO [None]
